FAERS Safety Report 9193340 (Version 2)
Quarter: 2013Q2

REPORT INFORMATION
  Report Type: Report from Study
  Country: JP (occurrence: JP)
  Receive Date: 20130327
  Receipt Date: 20130501
  Transmission Date: 20140414
  Serious: Yes (Other)
  Sender: FDA-Public Use
  Company Number: JP-JNJFOC-20130314660

PATIENT
  Age: 70 Year
  Sex: Male
  Weight: 63 kg

DRUGS (17)
  1. SIMPONI [Suspect]
     Indication: RHEUMATOID ARTHRITIS
     Route: 058
     Dates: start: 20121114, end: 20121114
  2. ENBREL [Suspect]
     Indication: RHEUMATOID ARTHRITIS
     Route: 058
     Dates: start: 20110617, end: 20121024
  3. SALAZOSULFAPYRIDINE [Concomitant]
     Indication: RHEUMATOID ARTHRITIS
  4. BUCILLAMINE [Concomitant]
     Indication: RHEUMATOID ARTHRITIS
  5. PREDNISOLONE [Concomitant]
     Indication: RHEUMATOID ARTHRITIS
     Route: 048
     Dates: start: 20121128
  6. PREDNISOLONE [Concomitant]
     Indication: RHEUMATOID ARTHRITIS
     Route: 048
     Dates: end: 20121127
  7. LOXONIN [Concomitant]
     Indication: RHEUMATOID ARTHRITIS
  8. TAKEPRON [Concomitant]
  9. ALOSITOL [Concomitant]
  10. XYZAL [Concomitant]
  11. ACTONEL [Concomitant]
  12. GLAKAY [Concomitant]
  13. BABY ASPIRIN [Concomitant]
  14. CEROCRAL [Concomitant]
  15. ATELEC [Concomitant]
  16. MICARDIS [Concomitant]
  17. LIVALO [Concomitant]

REACTIONS (2)
  - Rash pruritic [Recovered/Resolved]
  - Generalised erythema [Recovered/Resolved]
